FAERS Safety Report 16821300 (Version 4)
Quarter: 2021Q2

REPORT INFORMATION
  Report Type: Spontaneous
  Country: US (occurrence: US)
  Receive Date: 20190918
  Receipt Date: 20210407
  Transmission Date: 20210716
  Serious: Yes (Other)
  Sender: FDA-Public Use
  Company Number: US-GILEAD-2019-0428466

PATIENT
  Age: 35 Year
  Sex: Female
  Weight: 180.95 kg

DRUGS (29)
  1. RANITIDINE. [Concomitant]
     Active Substance: RANITIDINE
  2. PROMETHAZINE [Concomitant]
     Active Substance: PROMETHAZINE HYDROCHLORIDE
  3. BACLOFEN. [Concomitant]
     Active Substance: BACLOFEN
  4. ASPIRIN [ACETYLSALICYLIC ACID;ASCORBIC ACID] [Concomitant]
     Active Substance: ACETAMINOPHEN\ASCORBIC ACID
  5. WARFARIN [Concomitant]
     Active Substance: WARFARIN
  6. ENALAPRIL [Concomitant]
     Active Substance: ENALAPRIL
  7. GLIPIZIDE. [Concomitant]
     Active Substance: GLIPIZIDE
  8. CLONIDINE. [Concomitant]
     Active Substance: CLONIDINE
  9. ODEFSEY [Concomitant]
     Active Substance: EMTRICITABINE\RILPIVIRINE HYDROCHLORIDE\TENOFOVIR ALAFENAMIDE FUMARATE
  10. LOPERAMIDE [Concomitant]
     Active Substance: LOPERAMIDE
  11. ACYCLOVIR [ACICLOVIR SODIUM] [Concomitant]
     Active Substance: ACYCLOVIR
  12. ACETAMINOPHEN. [Concomitant]
     Active Substance: ACETAMINOPHEN
  13. IBUPROFEN. [Concomitant]
     Active Substance: IBUPROFEN
  14. IRON [Concomitant]
     Active Substance: IRON
  15. STRIBILD [Suspect]
     Active Substance: COBICISTAT\ELVITEGRAVIR\EMTRICITABINE\TENOFOVIR DISOPROXIL FUMARATE
     Indication: HIV INFECTION
     Dosage: UNK
     Route: 048
     Dates: start: 20151216, end: 201701
  16. STRIBILD [Suspect]
     Active Substance: COBICISTAT\ELVITEGRAVIR\EMTRICITABINE\TENOFOVIR DISOPROXIL FUMARATE
     Indication: ACQUIRED IMMUNODEFICIENCY SYNDROME
     Dosage: UNK
     Route: 048
     Dates: start: 20171211, end: 20180918
  17. LOVENOX [LEVOFLOXACIN] [Concomitant]
     Active Substance: LEVOFLOXACIN
  18. METOPROLOL. [Concomitant]
     Active Substance: METOPROLOL
  19. METFORMIN [Concomitant]
     Active Substance: METFORMIN HYDROCHLORIDE
  20. HCTZ [Concomitant]
     Active Substance: HYDROCHLOROTHIAZIDE
  21. KETOROLAC [Concomitant]
     Active Substance: KETOROLAC TROMETHAMINE
  22. ALBUTEROL [SALBUTAMOL SULFATE] [Concomitant]
     Active Substance: ALBUTEROL SULFATE
  23. LOVENOX [LEVOFLOXACIN] [Concomitant]
     Active Substance: LEVOFLOXACIN
  24. NAPROXEN. [Concomitant]
     Active Substance: NAPROXEN
  25. INSULIN [Concomitant]
     Active Substance: INSULIN NOS
  26. CITALOPRAM [Concomitant]
     Active Substance: CITALOPRAM HYDROBROMIDE
  27. GENVOYA [Concomitant]
     Active Substance: COBICISTAT\ELVITEGRAVIR\EMTRICITABINE\TENOFOVIR ALAFENAMIDE FUMARATE
  28. SYMTUZA [Concomitant]
     Active Substance: COBICISTAT\DARUNAVIR\EMTRICITABINE\TENOFOVIR ALAFENAMIDE
  29. DICYCLOVERINE [Concomitant]
     Active Substance: DICYCLOMINE HYDROCHLORIDE

REACTIONS (15)
  - Arthritis [Unknown]
  - Bone disorder [Unknown]
  - Renal disorder [Unknown]
  - Proteinuria [Unknown]
  - Bone density decreased [Not Recovered/Not Resolved]
  - Osteoarthritis [Unknown]
  - Pain [Not Recovered/Not Resolved]
  - Emotional distress [Not Recovered/Not Resolved]
  - Osteoarthritis [Unknown]
  - Anxiety [Not Recovered/Not Resolved]
  - Anhedonia [Not Recovered/Not Resolved]
  - Depression [Not Recovered/Not Resolved]
  - Renal failure [Not Recovered/Not Resolved]
  - Exostosis [Unknown]
  - Economic problem [Not Recovered/Not Resolved]

NARRATIVE: CASE EVENT DATE: 2015
